FAERS Safety Report 11122716 (Version 4)
Quarter: 2016Q1

REPORT INFORMATION
  Report Type: Spontaneous
  Country: US (occurrence: US)
  Receive Date: 20150519
  Receipt Date: 20160302
  Transmission Date: 20160525
  Serious: Yes (Hospitalization, Disabling, Other)
  Sender: FDA-Public Use
  Company Number: US-009507513-1204USA00518

PATIENT
  Sex: Female

DRUGS (4)
  1. ALENDRONATE SODIUM. [Suspect]
     Active Substance: ALENDRONATE SODIUM
     Indication: OSTEOPOROSIS
     Dosage: 70 MG, QW
     Route: 048
     Dates: start: 20080208, end: 20100407
  2. FOSAMAX [Suspect]
     Active Substance: ALENDRONATE SODIUM
     Indication: OSTEOPENIA
     Dosage: 70 MG, QW
     Route: 048
     Dates: end: 20080208
  3. ALENDRONATE SODIUM. [Suspect]
     Active Substance: ALENDRONATE SODIUM
     Indication: OSTEOPOROSIS
     Dosage: 70 MG, QW
     Route: 048
     Dates: end: 201111
  4. FOSAMAX [Suspect]
     Active Substance: ALENDRONATE SODIUM
     Indication: OSTEOPOROSIS

REACTIONS (19)
  - Intramedullary rod insertion [Recovered/Resolved]
  - Muscle strain [Unknown]
  - Impaired healing [Unknown]
  - Costochondritis [Unknown]
  - Stress fracture [Unknown]
  - Neck pain [Unknown]
  - Tinnitus [Unknown]
  - Femur fracture [Recovered/Resolved]
  - Low turnover osteopathy [Unknown]
  - Hypothyroidism [Unknown]
  - Pharyngitis [Unknown]
  - Upper respiratory tract infection [Unknown]
  - Amnesia [Unknown]
  - Rheumatoid arthritis [Unknown]
  - Dizziness [Unknown]
  - Osteoporosis [Unknown]
  - Hypoacusis [Unknown]
  - Bone disorder [Unknown]
  - Varicose vein [Unknown]

NARRATIVE: CASE EVENT DATE: 20030103
